FAERS Safety Report 9552110 (Version 5)
Quarter: 2014Q3

REPORT INFORMATION
  Report Type: Report from Study
  Country: DE (occurrence: DE)
  Receive Date: 20130925
  Receipt Date: 20140714
  Transmission Date: 20150326
  Serious: Yes (Hospitalization, Other)
  Sender: FDA-Public Use
  Company Number: PHHY2013DE101422

PATIENT
  Sex: Female
  Weight: 85 kg

DRUGS (3)
  1. AFINITOR [Suspect]
     Active Substance: EVEROLIMUS
     Indication: BREAST CANCER METASTATIC
     Dosage: 10 MG, DAILY
     Route: 048
     Dates: start: 20130822, end: 20130922
  2. RAMIPRIL. [Concomitant]
     Active Substance: RAMIPRIL
     Dosage: 5 MG (ONE IN MORNING AND HALF IN EVENING)
     Dates: start: 20110815, end: 20131013
  3. EXEMESTANE. [Suspect]
     Active Substance: EXEMESTANE
     Dosage: 25 MG, DAILY
     Route: 048
     Dates: start: 20130822, end: 20130922

REACTIONS (5)
  - Epilepsy [Recovered/Resolved]
  - Neck pain [Not Recovered/Not Resolved]
  - Metastases to meninges [Unknown]
  - Headache [Not Recovered/Not Resolved]
  - Sudden hearing loss [Recovered/Resolved]

NARRATIVE: CASE EVENT DATE: 20130826
